FAERS Safety Report 8028710-8 (Version None)
Quarter: 2012Q1

REPORT INFORMATION
  Report Type: 
  Country: None (occurrence: None)
  Receive Date: 20120104
  Receipt Date: 20111228
  Transmission Date: 20120608
  Serious: Yes (Hospitalization, Disabling, Other)
  Sender: FDA-Public Use
  Company Number: 2009-198049-NL

PATIENT
  Age: 29 Year
  Sex: Female
  Weight: 74.8435 kg

DRUGS (9)
  1. ADVAIR DISKUS 100/50 [Concomitant]
  2. ALBUTEROL [Concomitant]
  3. IMITREX [Concomitant]
  4. INTRAUTERINE DEVICE [Suspect]
     Indication: PRODUCT USED FOR UNKNOWN INDICATION
  5. GUAIFENESIN [Concomitant]
  6. NUVARING [Suspect]
     Indication: CONTRACEPTION
     Dates: start: 20070228, end: 20070701
  7. ACETAMINOPHEN [Concomitant]
  8. SUDAFED 12 HOUR [Concomitant]
  9. PULMICORT [Concomitant]

REACTIONS (6)
  - VOMITING [None]
  - DEPRESSION [None]
  - VERTIGO POSITIONAL [None]
  - SUBDURAL HAEMATOMA [None]
  - FALL [None]
  - INTRACRANIAL VENOUS SINUS THROMBOSIS [None]
